FAERS Safety Report 10230998 (Version 1)
Quarter: 2014Q2

REPORT INFORMATION
  Report Type: Spontaneous
  Country: US (occurrence: None)
  Receive Date: 20140610
  Receipt Date: 20140610
  Transmission Date: 20141212
  Serious: Yes (Life-Threatening, Hospitalization, Disabling, Other)
  Sender: FDA-Public Use
  Company Number: None

PATIENT
  Age: 49 Year
  Sex: Female
  Weight: 94.35 kg

DRUGS (1)
  1. SEROQUEL XR 400MG ASTRA ZENECA [Suspect]
     Indication: BIPOLAR I DISORDER
     Dosage: 1 PILL  AT BEDTIME TAKEN BY MOUTH
     Route: 048
     Dates: start: 20140501, end: 20140606

REACTIONS (1)
  - Loss of consciousness [None]
